FAERS Safety Report 8554197-2 (Version None)
Quarter: 2012Q3

REPORT INFORMATION
  Report Type: 
  Country: None (occurrence: None)
  Receive Date: 20120731
  Receipt Date: 20120726
  Transmission Date: 20120928
  Serious: Yes (Death, Hospitalization, Other)
  Sender: FDA-Public Use
  Company Number: BR-ELI_LILLY_AND_COMPANY-BR201206000289

PATIENT
  Sex: Male
  Weight: 63 kg

DRUGS (12)
  1. MORPHINE SULFATE [Concomitant]
     Dosage: 10 MG, EVERY 4 HRS
     Route: 065
  2. BISACODYL [Concomitant]
     Dosage: 5 MG, QD
     Route: 065
  3. DEXAMETHASONE [Concomitant]
     Dosage: 20 MG, UNKNOWN
     Route: 042
  4. METHADON HYDROCHLORIDE TAB [Concomitant]
     Dosage: 10 MG, EVERY 8 HRS
     Route: 065
  5. LACTULOSE [Concomitant]
     Dosage: UNK, UNKNOWN
     Route: 065
  6. GEMZAR [Suspect]
     Dosage: 1700 MG, UNKNOWN
     Route: 042
     Dates: start: 20120511
  7. FORMOTEROL W/BUDESONIDE [Concomitant]
     Dosage: UNK, BID
     Route: 065
  8. GEMZAR [Suspect]
     Indication: BRONCHIAL CARCINOMA
     Dosage: 1700 MG, UNKNOWN
     Route: 042
     Dates: start: 20120504
  9. CISPLATIN [Concomitant]
     Indication: BRONCHIAL CARCINOMA
     Dosage: 136 MG, UNKNOWN
     Route: 042
  10. ACETAMINOPHEN [Concomitant]
     Dosage: 500 MG, EVERY 6 HRS
     Route: 065
  11. AMITRIPTLINE HYDROCHLORIDE TAB [Concomitant]
     Dosage: 25 MG, QD
     Route: 065
  12. ONDANSETRON [Concomitant]
     Dosage: 8 MG, UNKNOWN
     Route: 042

REACTIONS (4)
  - ERYTHROPENIA [None]
  - SEPSIS [None]
  - CARDIO-RESPIRATORY ARREST [None]
  - LEUKOPENIA [None]
